FAERS Safety Report 5822365-6 (Version None)
Quarter: 2008Q3

REPORT INFORMATION
  Report Type: 
  Country: None (occurrence: None)
  Receive Date: 20080723
  Receipt Date: 20080723
  Transmission Date: 20090109
  Serious: Yes (Death)
  Sender: FDA-Public Use
  Company Number: None

PATIENT
  Age: 41 Year
  Sex: Male
  Weight: 105.2345 kg

DRUGS (3)
  1. ZYPREXA [Suspect]
     Indication: SCHIZOPHRENIA
     Dosage: 2 TABLETS BEDTIME PO
     Route: 048
     Dates: start: 20071120, end: 20080529
  2. FLUOXETINE [Concomitant]
  3. ATENOLOL [Concomitant]

REACTIONS (3)
  - ABNORMAL BEHAVIOUR [None]
  - DIABETIC KETOACIDOSIS [None]
  - INFLUENZA LIKE ILLNESS [None]
